FAERS Safety Report 22757028 (Version 3)
Quarter: 2023Q4

REPORT INFORMATION
  Report Type: Report from Study
  Country: US (occurrence: US)
  Receive Date: 20230727
  Receipt Date: 20231019
  Transmission Date: 20240109
  Serious: No
  Sender: FDA-Public Use
  Company Number: US-002147023-NVSC2023US165030

PATIENT
  Sex: Female

DRUGS (1)
  1. LEQVIO [Suspect]
     Active Substance: INCLISIRAN SODIUM
     Indication: Product used for unknown indication
     Dosage: UNK
     Route: 058
     Dates: start: 20230714, end: 20231017

REACTIONS (6)
  - Cystitis [Unknown]
  - Herpes zoster [Unknown]
  - Sleep disorder [Unknown]
  - Asthma [Unknown]
  - Bronchitis chronic [Unknown]
  - Arthralgia [Unknown]
